FAERS Safety Report 11263651 (Version 1)
Quarter: 2015Q3

REPORT INFORMATION
  Report Type: Report from Study
  Country: CA (occurrence: CA)
  Receive Date: 20150713
  Receipt Date: 20150713
  Transmission Date: 20151125
  Serious: Yes (Hospitalization, Other)
  Sender: FDA-Public Use
  Company Number: CA-ROCHE-GNE279889

PATIENT
  Age: 52 Year
  Sex: Female

DRUGS (1)
  1. OMALIZUMAB [Suspect]
     Active Substance: OMALIZUMAB
     Indication: ASTHMA
     Route: 058
     Dates: start: 20081008

REACTIONS (3)
  - Gastroenteritis bacterial [Unknown]
  - Encephalitis viral [Unknown]
  - Fatigue [Unknown]

NARRATIVE: CASE EVENT DATE: 20090221
